FAERS Safety Report 9217492 (Version 3)
Quarter: 2013Q2

REPORT INFORMATION
  Report Type: Spontaneous
  Country: US (occurrence: None)
  Receive Date: 20130404
  Receipt Date: 20130412
  Transmission Date: 20140414
  Serious: Yes (Hospitalization, Other)
  Sender: FDA-Public Use
  Company Number: ADR-2013-00575

PATIENT
  Age: 65 Year
  Sex: Female

DRUGS (1)
  1. LIORESAL INTRATHECAL (BACLOFEN INJECTION) [Suspect]
     Indication: MUSCLE SPASTICITY
     Dosage: 415 MCG/DAY?

REACTIONS (5)
  - Muscular weakness [None]
  - Inflammation [None]
  - Mass [None]
  - Catheter site related reaction [None]
  - Medical device complication [None]
